FAERS Safety Report 7704490-8 (Version None)
Quarter: 2011Q3

REPORT INFORMATION
  Report Type: 
  Country: None (occurrence: None)
  Receive Date: 20110823
  Receipt Date: 20110810
  Transmission Date: 20111222
  Serious: Yes (Hospitalization)
  Sender: FDA-Public Use
  Company Number: FR-NOVOPROD-333638

PATIENT

DRUGS (7)
  1. ASPIRIN [Concomitant]
     Dosage: 75 MG, QD
     Route: 048
  2. LIPANOR [Concomitant]
     Dosage: 1 DF, QD
  3. REPAGLINIDE [Suspect]
     Indication: TYPE 2 DIABETES MELLITUS
     Dosage: UK
     Route: 065
     Dates: start: 20110404, end: 20110407
  4. ACARBOSE [Concomitant]
     Dosage: 3 DF, QD
  5. AUGMENTIN '125' [Suspect]
     Indication: ERYSIPELAS
     Dosage: 3 DF, QD
     Dates: start: 20110330, end: 20110407
  6. AMILORIDE HYDROCHLORIDE [Suspect]
     Indication: PRODUCT USED FOR UNKNOWN INDICATION
     Dosage: 1 DF, QD
     Route: 048
     Dates: start: 20110402, end: 20110407
  7. ALDALIX [Suspect]
     Indication: PRODUCT USED FOR UNKNOWN INDICATION
     Dosage: 50 MG/20 MG
     Route: 048
     Dates: end: 20110402

REACTIONS (1)
  - RASH [None]
